FAERS Safety Report 4374206-4 (Version None)
Quarter: 2004Q2

REPORT INFORMATION
  Report Type: 
  Country: None (occurrence: None)
  Receive Date: 20040604
  Receipt Date: 20040524
  Transmission Date: 20050107
  Serious: Yes (Other)
  Sender: FDA-Public Use
  Company Number: US-JNJFOC-20040305691

PATIENT
  Age: 61 Year
  Sex: Female

DRUGS (1)
  1. DURAGESIC [Suspect]
     Dosage: 25 UG/HR, TRANSDERMAL
     Route: 062
     Dates: start: 20031209, end: 20040129

REACTIONS (1)
  - CONVULSION [None]
